FAERS Safety Report 16141210 (Version 1)
Quarter: 2019Q2

REPORT INFORMATION
  Report Type: Spontaneous
  Country: FR (occurrence: FR)
  Receive Date: 20190401
  Receipt Date: 20190401
  Transmission Date: 20190711
  Serious: Yes (Death)
  Sender: FDA-Public Use
  Company Number: FR-AMREGENT-20190554

PATIENT
  Age: 92 Year
  Sex: Male
  Weight: 88.7 kg

DRUGS (9)
  1. VENOFER [Suspect]
     Active Substance: IRON SUCROSE
     Dosage: 80 MG,1 D
     Route: 041
     Dates: start: 20190131, end: 20190131
  2. VERAPAMIL [Suspect]
     Active Substance: VERAPAMIL HYDROCHLORIDE
     Dosage: 1 DOSAGE FORMS,1 IN 1 D
     Route: 048
     Dates: end: 20190201
  3. RAMIPRIL MYLAN [Suspect]
     Active Substance: RAMIPRIL
     Dosage: 1.25 MG,1 IN 1 D
     Route: 048
     Dates: end: 20190201
  4. ADENURIC [Suspect]
     Active Substance: FEBUXOSTAT
     Dosage: 1 DOSAGE FORMS,1 IN 1 D
     Route: 048
     Dates: end: 20190201
  5. PREVISCAN (FLUINDIONE) [Suspect]
     Active Substance: FLUINDIONE
     Dosage: 20 MG,1 IN 1 D
     Route: 048
     Dates: end: 20190131
  6. CEFTRIAXONE MYLAN [Suspect]
     Active Substance: CEFTRIAXONE
     Dosage: 1 GM,1 IN 1 D
     Route: 041
     Dates: start: 20190126, end: 20190201
  7. BRICANYL [Suspect]
     Active Substance: TERBUTALINE SULFATE
     Dosage: 3 PUFFS A DAY (3 DF, 1 IN 1 D)
     Route: 065
     Dates: end: 20190201
  8. ATROVENT [Suspect]
     Active Substance: IPRATROPIUM BROMIDE
     Dosage: 3 PUFFS A DAY (3 DF, 1 IN 1 D)
     Route: 065
     Dates: end: 20190201
  9. ROVAMYCINE [Suspect]
     Active Substance: SPIRAMYCIN
     Dosage: 4 DOSAGE FORMS,1 IN 1 D
     Route: 048
     Dates: start: 20190130, end: 20190201

REACTIONS (3)
  - Cerebral haematoma [Fatal]
  - International normalised ratio abnormal [Fatal]
  - Prothrombin time ratio decreased [Fatal]

NARRATIVE: CASE EVENT DATE: 20190201
